FAERS Safety Report 12340055 (Version 4)
Quarter: 2016Q3

REPORT INFORMATION
  Report Type: Spontaneous
  Country: ES (occurrence: ES)
  Receive Date: 20160506
  Receipt Date: 20160712
  Transmission Date: 20161109
  Serious: Yes (Other)
  Sender: FDA-Public Use
  Company Number: ES-009507513-1604ESP017416

PATIENT
  Age: 61 Year
  Sex: Male

DRUGS (1)
  1. ONCOTICE [Suspect]
     Active Substance: BACILLUS CALMETTE-GUERIN SUBSTRAIN TICE LIVE ANTIGEN
     Indication: BLADDER CANCER
     Dosage: HA RECIBIDO 6 INSTILACIONES DE BCG INTRAVESICAL
     Route: 043
     Dates: start: 20160211, end: 20160317

REACTIONS (5)
  - Micturition urgency [Unknown]
  - Pollakiuria [Unknown]
  - Arthralgia [Unknown]
  - Uveitis [Unknown]
  - Urinary retention [Recovered/Resolved]

NARRATIVE: CASE EVENT DATE: 20160318
